FAERS Safety Report 20092437 (Version 4)
Quarter: 2022Q2

REPORT INFORMATION
  Report Type: Spontaneous
  Country: IN (occurrence: IN)
  Receive Date: 20211119
  Receipt Date: 20220406
  Transmission Date: 20220721
  Serious: Yes (Other)
  Sender: FDA-Public Use
  Company Number: IN-PFIZER INC-2021622610

PATIENT
  Age: 45 Year
  Sex: Male

DRUGS (3)
  1. SUTENT [Suspect]
     Active Substance: SUNITINIB MALATE
     Indication: Metastatic renal cell carcinoma
     Dosage: 50 MG, CYCLIC (2 WEEKS ON AND 1 WEEK OFF)
     Route: 048
     Dates: start: 20210430
  2. SUTENT [Suspect]
     Active Substance: SUNITINIB MALATE
     Dosage: 37.5 MG, CYCLIC (2 WEEKS ON AND 1 WEEK OFF)
     Route: 048
  3. SUTENT [Suspect]
     Active Substance: SUNITINIB MALATE
     Dosage: 25 MG
     Route: 048
     Dates: start: 202105

REACTIONS (5)
  - Hepatorenal syndrome [Recovered/Resolved]
  - Stomatitis [Recovering/Resolving]
  - Neoplasm progression [Unknown]
  - Skin discolouration [Unknown]
  - Weight increased [Unknown]

NARRATIVE: CASE EVENT DATE: 20210101
